FAERS Safety Report 6451977-4 (Version None)
Quarter: 2009Q4

REPORT INFORMATION
  Report Type: 
  Country: None (occurrence: None)
  Receive Date: 20091123
  Receipt Date: 20091021
  Transmission Date: 20100525
  Serious: No
  Sender: FDA-Public Use
  Company Number: US-BAYER-200915920BCC

PATIENT
  Age: 75 Year
  Sex: Female
  Weight: 79 kg

DRUGS (4)
  1. ALEVE (CAPLET) [Suspect]
     Indication: ARTHRALGIA
     Dosage: TOTAL DAILY DOSE: 220 MG  UNIT DOSE: 220 MG
     Route: 048
     Dates: start: 20091001, end: 20091020
  2. ATENOLOL [Concomitant]
     Route: 065
  3. TRIMETHAMINE [Concomitant]
     Route: 065
  4. NORVASC [Concomitant]
     Route: 065

REACTIONS (1)
  - NAUSEA [None]
